FAERS Safety Report 6942316-0 (Version None)
Quarter: 2010Q3

REPORT INFORMATION
  Report Type: 
  Country: None (occurrence: None)
  Receive Date: 20100819
  Receipt Date: 20100804
  Transmission Date: 20110219
  Serious: Yes (Hospitalization)
  Sender: FDA-Public Use
  Company Number: AMI0023698

PATIENT
  Age: 67 Year
  Sex: Female

DRUGS (9)
  1. TIMOPTIC [Suspect]
     Indication: OCULAR HYPERTENSION
     Dosage: BID - 046
     Dates: start: 20100517
  2. TIMOPTIC [Suspect]
     Indication: OPEN ANGLE GLAUCOMA
     Dosage: BID - 046
     Dates: start: 20100517
  3. TAFLUPROST 0.0015% (MK-2452) [Suspect]
     Indication: OCULAR HYPERTENSION
     Dosage: QD - 046
     Dates: start: 20100517
  4. TAFLUPROST 0.0015% (MK-2452) [Suspect]
     Indication: OPEN ANGLE GLAUCOMA
     Dosage: QD - 046
     Dates: start: 20100517
  5. NAPROSYN [Concomitant]
  6. INDAPAMIDE [Concomitant]
  7. COREG [Concomitant]
  8. COUMADIN [Concomitant]
  9. LOTREL (AMLODIPINE BESYLATE AND BENAZEPRIL HYDROCHLORIDE) [Concomitant]

REACTIONS (1)
  - PULMONARY EMBOLISM [None]
